FAERS Safety Report 25690057 (Version 1)
Quarter: 2025Q3

REPORT INFORMATION
  Report Type: Spontaneous
  Country: US (occurrence: US)
  Receive Date: 20250818
  Receipt Date: 20250818
  Transmission Date: 20251020
  Serious: No
  Sender: PFIZER
  Company Number: US-PFIZER INC-202400328111

PATIENT
  Age: 58 Year
  Sex: Female

DRUGS (3)
  1. LORBRENA [Suspect]
     Active Substance: LORLATINIB
     Indication: Non-small cell lung cancer
     Dates: start: 202212
  2. LORBRENA [Suspect]
     Active Substance: LORLATINIB
  3. LORBRENA [Suspect]
     Active Substance: LORLATINIB

REACTIONS (3)
  - Oedema [Recovering/Resolving]
  - Speech disorder [Unknown]
  - Off label use [Unknown]

NARRATIVE: CASE EVENT DATE: 20230101
